FAERS Safety Report 12130197 (Version 2)
Quarter: 2016Q1

REPORT INFORMATION
  Report Type: Spontaneous
  Country: RU (occurrence: RU)
  Receive Date: 20160229
  Receipt Date: 20160302
  Transmission Date: 20160526
  Serious: Yes (Other)
  Sender: FDA-Public Use
  Company Number: RU-ROCHE-1718192

PATIENT
  Age: 59 Year
  Sex: Female

DRUGS (1)
  1. RITUXIMAB [Suspect]
     Active Substance: RITUXIMAB
     Indication: RHEUMATOID ARTHRITIS
     Dosage: 500 MG EVERY 2 WEEKS
     Route: 042
     Dates: start: 201306

REACTIONS (1)
  - Hepatitis B core antibody positive [Not Recovered/Not Resolved]

NARRATIVE: CASE EVENT DATE: 201602
